FAERS Safety Report 13594399 (Version 4)
Quarter: 2017Q2

REPORT INFORMATION
  Report Type: Report from Study
  Country: BR (occurrence: BR)
  Receive Date: 20170530
  Receipt Date: 20170623
  Transmission Date: 20170830
  Serious: Yes (Other)
  Sender: FDA-Public Use
  Company Number: BR-BIOGEN-2017BI00408812

PATIENT
  Age: 54 Year
  Sex: Male

DRUGS (2)
  1. AVONEX [Suspect]
     Active Substance: INTERFERON BETA-1A
     Indication: MULTIPLE SCLEROSIS
     Route: 030
     Dates: start: 20170405, end: 201705
  2. AVONEX [Suspect]
     Active Substance: INTERFERON BETA-1A
     Route: 030

REACTIONS (10)
  - Decreased immune responsiveness [Unknown]
  - Multiple sclerosis relapse [Unknown]
  - Drug dose omission [Unknown]
  - Infective myositis [Unknown]
  - Nail operation [Unknown]
  - Muscle necrosis [Unknown]
  - Accident [Recovered/Resolved]
  - Skin infection [Unknown]
  - Limb injury [Not Recovered/Not Resolved]
  - Drug ineffective [Unknown]

NARRATIVE: CASE EVENT DATE: 201705
